FAERS Safety Report 14776707 (Version 1)
Quarter: 2018Q2

REPORT INFORMATION
  Report Type: Spontaneous
  Country: GB (occurrence: GB)
  Receive Date: 20180419
  Receipt Date: 20180419
  Transmission Date: 20180711
  Serious: Yes (Life-Threatening, Disabling, Other)
  Sender: FDA-Public Use
  Company Number: GB-TEVA-2018-GB-883247

PATIENT
  Age: 56 Year
  Sex: Female
  Weight: 61.68 kg

DRUGS (1)
  1. ROPINIROLE EXTENDED RELEASE [Suspect]
     Active Substance: ROPINIROLE
     Indication: RESTLESS LEGS SYNDROME
     Route: 048
     Dates: start: 20000101, end: 20160810

REACTIONS (4)
  - Withdrawal syndrome [Unknown]
  - Condition aggravated [Recovered/Resolved with Sequelae]
  - Muscle spasms [Recovered/Resolved with Sequelae]
  - Restless legs syndrome [Recovered/Resolved with Sequelae]

NARRATIVE: CASE EVENT DATE: 20160401
